FAERS Safety Report 10260224 (Version 1)
Quarter: 2014Q2

REPORT INFORMATION
  Report Type: Spontaneous
  Country: US (occurrence: US)
  Receive Date: 20140625
  Receipt Date: 20140625
  Transmission Date: 20141212
  Serious: No
  Sender: FDA-Public Use
  Company Number: US-SA-2014SA037106

PATIENT
  Age: 51 Year
  Sex: Male

DRUGS (8)
  1. AUBAGIO [Suspect]
     Indication: MULTIPLE SCLEROSIS
     Route: 048
     Dates: start: 20130808, end: 20140319
  2. BETA BLOCKING AGENTS [Concomitant]
  3. METOPROLOL [Concomitant]
  4. NORTRIPTYLINE [Concomitant]
  5. HYDROMORPHONE [Concomitant]
  6. DILAUDID [Concomitant]
  7. CYMBALTA [Concomitant]
  8. KEPPRA [Concomitant]

REACTIONS (2)
  - Tachycardia [Not Recovered/Not Resolved]
  - Hypertension [Not Recovered/Not Resolved]
